FAERS Safety Report 4263865-2 (Version None)
Quarter: 2004Q1

REPORT INFORMATION
  Report Type: 
  Country: None (occurrence: None)
  Receive Date: 20040102
  Receipt Date: 20031210
  Transmission Date: 20041129
  Serious: Yes (Hospitalization)
  Sender: FDA-Public Use
  Company Number: EWC031237346

PATIENT
  Age: 11 Year
  Sex: Female

DRUGS (2)
  1. HUMALOG [Suspect]
     Indication: DIABETES MELLITUS
     Dates: start: 20031201
  2. HUMULIN N [Suspect]
     Indication: DIABETES MELLITUS

REACTIONS (5)
  - DRUG INEFFECTIVE [None]
  - HYPERGLYCAEMIA [None]
  - KETOACIDOSIS [None]
  - PANNICULITIS [None]
  - VOMITING [None]
